FAERS Safety Report 11184700 (Version 1)
Quarter: 2015Q2

REPORT INFORMATION
  Report Type: Spontaneous
  Country: US (occurrence: US)
  Receive Date: 20150612
  Receipt Date: 20150612
  Transmission Date: 20150821
  Serious: Yes (Hospitalization, Other)
  Sender: FDA-Public Use
  Company Number: US-AUROBINDO-AUR-APL-2015-04954

PATIENT
  Age: 59 Year
  Sex: Male

DRUGS (7)
  1. HEROIN [Concomitant]
     Active Substance: DIACETYLMORPHINE
     Indication: PRODUCT USED FOR UNKNOWN INDICATION
     Route: 042
  2. CEPHALEXIN                         /00145501/ [Concomitant]
     Active Substance: CEPHALEXIN
     Indication: ABSCESS
     Route: 048
  3. HYDROCHLOROTHIAZIDE. [Concomitant]
     Active Substance: HYDROCHLOROTHIAZIDE
     Indication: HYPERTENSION
     Route: 065
  4. MIRTAZAPINE. [Concomitant]
     Active Substance: MIRTAZAPINE
     Indication: DEPRESSION
     Route: 065
  5. HEROIN [Concomitant]
     Active Substance: DIACETYLMORPHINE
     Dosage: UNK
     Route: 030
  6. MINOCYCLINE [Concomitant]
     Active Substance: MINOCYCLINE\MINOCYCLINE HYDROCHLORIDE
     Indication: ABSCESS
     Route: 048
  7. ATOMOXETINE [Suspect]
     Active Substance: ATOMOXETINE
     Indication: ATTENTION DEFICIT/HYPERACTIVITY DISORDER

REACTIONS (10)
  - Alanine aminotransferase increased [Recovered/Resolved]
  - Tenderness [Recovered/Resolved]
  - Ocular icterus [Recovered/Resolved]
  - Fatigue [Recovered/Resolved]
  - Blood alkaline phosphatase increased [Recovered/Resolved]
  - Hepatitis [Recovered/Resolved]
  - Jaundice [Recovered/Resolved]
  - Abdominal pain [Recovered/Resolved]
  - Aspartate aminotransferase increased [Recovered/Resolved]
  - Decreased appetite [Recovered/Resolved]
